FAERS Safety Report 20686883 (Version 1)
Quarter: 2022Q2

REPORT INFORMATION
  Report Type: Spontaneous
  Country: ES (occurrence: ES)
  Receive Date: 20220407
  Receipt Date: 20220407
  Transmission Date: 20220721
  Serious: Yes (Death)
  Sender: FDA-Public Use
  Company Number: None

PATIENT
  Age: 84 Year
  Sex: Female

DRUGS (10)
  1. ENOXAPARIN SODIUM [Suspect]
     Active Substance: ENOXAPARIN SODIUM
     Indication: Acute coronary syndrome
     Dosage: 50.0 MG C/12 H
     Route: 058
     Dates: start: 20201115, end: 20201126
  2. GABAPENTIN [Concomitant]
     Active Substance: GABAPENTIN
     Indication: Anxiety
     Dosage: 300.0 MG C/12 H
     Route: 048
     Dates: start: 20170907
  3. ACIDOSE [Concomitant]
     Indication: Acute myocardial infarction
     Dosage: 100.0 MG DE
     Route: 048
     Dates: start: 20190202
  4. MST-1 [Concomitant]
     Indication: Arthrodesis
     Dosage: 15.0 MG DECE
     Route: 048
     Dates: start: 20200224
  5. FLUOXETINE [Concomitant]
     Active Substance: FLUOXETINE HYDROCHLORIDE
     Indication: Product used for unknown indication
     Dosage: 20.0 MG C/24 H
     Route: 048
     Dates: start: 20181116
  6. OMEPRAZOLE [Concomitant]
     Active Substance: OMEPRAZOLE
     Indication: Product used for unknown indication
     Dosage: 10.0 MG A-DE
     Route: 048
     Dates: start: 20191122
  7. REPAGLINIDE [Concomitant]
     Active Substance: REPAGLINIDE
     Indication: Diabetes mellitus
     Dosage: 0.5 MG CO
     Route: 048
     Dates: start: 20141222
  8. LEVOTHYROXINE SODIUM [Concomitant]
     Active Substance: LEVOTHYROXINE SODIUM
     Indication: Hypothyroidism
     Dosage: 125.0 MCG A-DE
     Route: 048
     Dates: start: 20190710
  9. LORAZEPAM [Concomitant]
     Active Substance: LORAZEPAM
     Indication: Product used for unknown indication
     Dosage: 1.0 MG C/24 H NOC
     Route: 048
     Dates: start: 20201026
  10. ACETAMINOPHEN [Concomitant]
     Active Substance: ACETAMINOPHEN
     Indication: Osteoarthritis
     Dosage: 1.0 G DECOCE
     Route: 048
     Dates: start: 20180614

REACTIONS (1)
  - Haematoma [Fatal]
